FAERS Safety Report 8989130 (Version 1)
Quarter: 2012Q4

REPORT INFORMATION
  Report Type: 
  Country: JP (occurrence: JP)
  Receive Date: 20121228
  Receipt Date: 20121228
  Transmission Date: 20130627
  Serious: Yes (Death, Hospitalization)
  Sender: FDA-Public Use
  Company Number: JP-SANOFI-AVENTIS-200910108JP

PATIENT
  Age: 80 Year
  Sex: Male
  Weight: 75 kg

DRUGS (4)
  1. DOCETAXEL [Suspect]
     Indication: HORMONE-REFRACTORY PROSTATE CANCER
     Route: 041
     Dates: start: 20081205, end: 20081205
  2. PREDNISOLONE [Concomitant]
     Indication: PROSTATE CARCINOMA
     Dosage: Dose as used: 5 MG
     Route: 048
     Dates: start: 20081205, end: 20081218
  3. UFT [Concomitant]
     Indication: PROSTATE CARCINOMA
     Dates: start: 20080707, end: 20081215
  4. ENDOXAN [Concomitant]
     Indication: PROSTATE CARCINOMA
     Dates: start: 20080707, end: 20081215

REACTIONS (4)
  - Interstitial lung disease [Fatal]
  - Dyspnoea exertional [Fatal]
  - Respiratory failure [Fatal]
  - Dyspnoea [Fatal]
